FAERS Safety Report 5149701-0 (Version None)
Quarter: 2006Q4

REPORT INFORMATION
  Report Type: 
  Country: None (occurrence: None)
  Receive Date: 20061113
  Receipt Date: 20061031
  Transmission Date: 20070319
  Serious: Yes (Hospitalization)
  Sender: FDA-Public Use
  Company Number: FR-ROCHE-469436

PATIENT
  Age: 76 Year
  Sex: Female

DRUGS (20)
  1. ROCEPHIN [Suspect]
     Route: 065
     Dates: start: 20060811
  2. BACTRIM [Suspect]
     Route: 065
     Dates: start: 20060818, end: 20060831
  3. CIFLOX [Suspect]
     Route: 065
     Dates: start: 20060810
  4. CELEBREX [Suspect]
     Indication: DRUG USE FOR UNKNOWN INDICATION
     Route: 048
     Dates: start: 20060731
  5. DOLIPRANE [Suspect]
     Route: 048
     Dates: start: 20060810, end: 20060831
  6. ACTISKENAN [Suspect]
     Route: 048
     Dates: start: 20060810
  7. TAHOR [Concomitant]
     Dosage: LONG-STANDING TREATMENT.
  8. AVLOCARDYL [Concomitant]
     Dosage: LONG-STANDING TREATMENT.
  9. DEROXAT [Concomitant]
     Dosage: LONG-STANDING TREATMENT.
  10. FOSAMAX [Concomitant]
     Dosage: LONG-STANDING TREATMENT.
  11. FORLAX (MACROGOL) [Concomitant]
     Dosage: LONG-STANDING TREATMENT.
  12. OGAST [Concomitant]
     Dosage: LONG-STANDING TREATMENT.
  13. OMEPRAZOLE [Concomitant]
     Dates: start: 20060831
  14. ACETAMINOPHEN [Concomitant]
     Dates: start: 20060831
  15. CETIRIZINE HCL [Concomitant]
     Dates: start: 20060830
  16. NOROXIN [Concomitant]
     Dates: start: 20060830
  17. GYNO-PEVARYL [Concomitant]
     Dates: start: 20060830
  18. MICONAZOLE NITRATE [Concomitant]
     Route: 002
     Dates: start: 20060830
  19. KETODERM [Concomitant]
     Dates: start: 20060830
  20. UNSPECIFIED DRUG [Concomitant]
     Indication: CANDIDIASIS

REACTIONS (6)
  - CONJUNCTIVITIS [None]
  - ERYTHEMA [None]
  - ODYNOPHAGIA [None]
  - ORAL MUCOSAL ERUPTION [None]
  - RASH MACULO-PAPULAR [None]
  - STEVENS-JOHNSON SYNDROME [None]
